FAERS Safety Report 7550243-3 (Version None)
Quarter: 2011Q2

REPORT INFORMATION
  Report Type: 
  Country: None (occurrence: None)
  Receive Date: 20110615
  Receipt Date: 20110610
  Transmission Date: 20111010
  Serious: Yes (Other)
  Sender: FDA-Public Use
  Company Number: JP-PFIZER INC-2010121823

PATIENT
  Age: 50 Year
  Sex: Female
  Weight: 76.6 kg

DRUGS (7)
  1. LANTUS [Concomitant]
     Indication: DIABETES MELLITUS
     Dosage: 12 IU, 1X/DAY
     Route: 058
     Dates: start: 20100701
  2. NORVASC [Concomitant]
     Dosage: UNK
     Dates: start: 20101102
  3. MICARDIS [Suspect]
     Dosage: UNK
     Dates: start: 20110201
  4. MICARDIS [Suspect]
     Indication: HYPERTENSION
     Dosage: 40 MG, 1X/DAY
     Route: 048
     Dates: start: 20100623, end: 20101101
  5. HUMALOG [Concomitant]
     Indication: DIABETES MELLITUS
     Dosage: 6 IU, 3X/DAY
     Route: 058
     Dates: start: 20100628
  6. LIPITOR [Suspect]
     Indication: HYPERCHOLESTEROLAEMIA
     Dosage: 5 MG, 1X/DAY
     Route: 048
     Dates: start: 20100811, end: 20100922
  7. LIPITOR [Suspect]
     Dosage: 10 MG, 1X/DAY
     Route: 048
     Dates: start: 20100623, end: 20100810

REACTIONS (4)
  - BONE MARROW FAILURE [None]
  - BLOOD FOLATE DECREASED [None]
  - APLASTIC ANAEMIA [None]
  - PANCYTOPENIA [None]
